FAERS Safety Report 5710384-X (Version None)
Quarter: 2008Q2

REPORT INFORMATION
  Report Type: 
  Country: None (occurrence: None)
  Receive Date: 20080418
  Receipt Date: 20080410
  Transmission Date: 20081010
  Serious: Yes (Other)
  Sender: FDA-Public Use
  Company Number: US-MERCK-0804USA02316

PATIENT
  Sex: Female

DRUGS (1)
  1. FOSAMAX [Suspect]
     Route: 048

REACTIONS (4)
  - BONE DENSITY DECREASED [None]
  - DRUG INEFFECTIVE [None]
  - HIP FRACTURE [None]
  - LOWER LIMB FRACTURE [None]
